FAERS Safety Report 5836356-2 (Version None)
Quarter: 2008Q3

REPORT INFORMATION
  Report Type: 
  Country: None (occurrence: None)
  Receive Date: 20080801
  Receipt Date: 20080520
  Transmission Date: 20090109
  Serious: Yes (Other)
  Sender: FDA-Public Use
  Company Number: PHEH2008US04222

PATIENT
  Sex: Female

DRUGS (3)
  1. EXELON [Suspect]
     Indication: DEMENTIA ALZHEIMER'S TYPE
     Dosage: 9.5 MG, TRANSDERMAL
     Route: 062
  2. ALPHAGEN EYE DROPS() [Suspect]
  3. DIOVAN [Concomitant]

REACTIONS (3)
  - APPLICATION SITE PAIN [None]
  - APPLICATION SITE URTICARIA [None]
  - BLOOD PRESSURE DECREASED [None]
